FAERS Safety Report 20887256 (Version 1)
Quarter: 2022Q2

REPORT INFORMATION
  Report Type: Spontaneous
  Country: GB (occurrence: GB)
  Receive Date: 20220528
  Receipt Date: 20220528
  Transmission Date: 20220720
  Serious: Yes (Other)
  Sender: FDA-Public Use
  Company Number: GB-MHRA-MED-202205171120593830-TRYI3

PATIENT
  Age: 28 Year
  Sex: Female

DRUGS (3)
  1. LAMOTRIGINE [Suspect]
     Active Substance: LAMOTRIGINE
     Indication: Epilepsy
     Dosage: 150 MILLIGRAM DAILY; HAVE HAD TO REDUCE BACK TO 50MG BD.; ;
     Route: 065
     Dates: start: 20211217
  2. FOLIC ACID [Concomitant]
     Active Substance: FOLIC ACID
  3. ZONISAMIDE [Concomitant]
     Active Substance: ZONISAMIDE
     Indication: Epilepsy

REACTIONS (2)
  - Mood swings [Unknown]
  - Maternal exposure during pregnancy [Unknown]

NARRATIVE: CASE EVENT DATE: 20211226
